FAERS Safety Report 14332849 (Version 1)
Quarter: 2017Q4

REPORT INFORMATION
  Report Type: Spontaneous
  Country: US (occurrence: US)
  Receive Date: 20171228
  Receipt Date: 20171228
  Transmission Date: 20180321
  Serious: Yes (Death, Life-Threatening, Hospitalization, Other)
  Sender: FDA-Public Use
  Company Number: US-PFIZER INC-2017542120

PATIENT
  Age: 63 Year
  Sex: Female

DRUGS (8)
  1. SODIUM BICARBONATE. [Concomitant]
     Active Substance: SODIUM BICARBONATE
     Dosage: FIVE AMPULS ( 44.5 MEQ/AMPUL)
  2. FUROSEMIDE. [Concomitant]
     Active Substance: FUROSEMIDE
     Dosage: UNK
  3. CEFAZOLIN [Suspect]
     Active Substance: CEFAZOLIN
     Dosage: 4 G, DAILY (A TOTAL OF 16 GM OF SODIUM CEFAZOLIN), (ONE GM INTRAVENOUSLY EVERY SIX HOURS)
     Route: 042
  4. KCL [Concomitant]
     Active Substance: POTASSIUM CHLORIDE
     Dosage: UNK
  5. MORPHINE SULFATE. [Concomitant]
     Active Substance: MORPHINE SULFATE
     Dosage: 3 MG, EVERY 4 HRS, (AS NEEDED)
     Route: 042
  6. CALCIUM GLUCONATE. [Concomitant]
     Active Substance: CALCIUM GLUCONATE
     Dosage: UNK
  7. DIGOXIN. [Concomitant]
     Active Substance: DIGOXIN
     Dosage: UNK
  8. LACTATED RINGERS SOLUTION [Concomitant]
     Active Substance: CALCIUM CHLORIDE\POTASSIUM CHLORIDE\SODIUM CHLORIDE\SODIUM LACTATE
     Dosage: 3 L, UNK

REACTIONS (2)
  - Neurotoxicity [Fatal]
  - Seizure [Recovered/Resolved]
